FAERS Safety Report 14213250 (Version 1)
Quarter: 2017Q4

REPORT INFORMATION
  Report Type: Spontaneous
  Country: US (occurrence: US)
  Receive Date: 20171122
  Receipt Date: 20171122
  Transmission Date: 20180321
  Serious: Yes (Hospitalization)
  Sender: FDA-Public Use
  Company Number: None

PATIENT
  Age: 21 Year
  Sex: Female
  Weight: 64.9 kg

DRUGS (1)
  1. ISOVUE 370 [Suspect]
     Active Substance: IOPAMIDOL
     Indication: COMPUTERISED TOMOGRAM
     Dosage: ?          OTHER FREQUENCY:ONCE;?
     Route: 042
     Dates: start: 20171115, end: 20171115

REACTIONS (7)
  - Nausea [None]
  - Anaphylactic reaction [None]
  - Refusal of treatment by patient [None]
  - Contrast media reaction [None]
  - Swollen tongue [None]
  - Swelling face [None]
  - Respiratory distress [None]

NARRATIVE: CASE EVENT DATE: 20171115
